FAERS Safety Report 17209085 (Version 1)
Quarter: 2019Q4

REPORT INFORMATION
  Report Type: Spontaneous
  Country: US (occurrence: US)
  Receive Date: 20191227
  Receipt Date: 20191227
  Transmission Date: 20200122
  Serious: Yes (Other)
  Sender: FDA-Public Use
  Company Number: US-ROCHE-2478588

PATIENT
  Sex: Male

DRUGS (1)
  1. ESBRIET [Suspect]
     Active Substance: PIRFENIDONE
     Indication: PRODUCT USED FOR UNKNOWN INDICATION
     Dosage: 267 MG TAB TID DAILY
     Route: 048
     Dates: start: 20190922

REACTIONS (3)
  - Gallstone ileus [Unknown]
  - Constipation [Unknown]
  - Abdominal pain upper [Unknown]
